FAERS Safety Report 11148119 (Version 1)
Quarter: 2015Q2

REPORT INFORMATION
  Report Type: Spontaneous
  Country: US (occurrence: US)
  Receive Date: 20150529
  Receipt Date: 20150529
  Transmission Date: 20150821
  Serious: No
  Sender: FDA-Public Use
  Company Number: US-BIOGENIDEC-2015BI072759

PATIENT
  Age: 69 Year
  Sex: Female

DRUGS (5)
  1. CARBATROL [Concomitant]
     Active Substance: CARBAMAZEPINE
  2. COREG [Concomitant]
     Active Substance: CARVEDILOL
  3. TECFIDERA [Suspect]
     Active Substance: DIMETHYL FUMARATE
     Indication: MULTIPLE SCLEROSIS
     Route: 048
     Dates: start: 20150311
  4. PAROXETINE HCI [Concomitant]
  5. METFORMIN HCI [Concomitant]

REACTIONS (1)
  - Haematoma [Unknown]

NARRATIVE: CASE EVENT DATE: 201505
